FAERS Safety Report 13073793 (Version 2)
Quarter: 2017Q1

REPORT INFORMATION
  Report Type: Spontaneous
  Country: JP (occurrence: JP)
  Receive Date: 20161229
  Receipt Date: 20170125
  Transmission Date: 20170428
  Serious: Yes (Death, Hospitalization, Other)
  Sender: FDA-Public Use
  Company Number: JP-PFIZER INC-2016599662

PATIENT
  Age: 83 Year
  Sex: Female

DRUGS (1)
  1. CELECOX [Suspect]
     Active Substance: CELECOXIB
     Indication: BACK PAIN
     Dosage: 200 MG, 1X/DAY
     Route: 048
     Dates: start: 20161110, end: 2016

REACTIONS (6)
  - Tachycardia [Unknown]
  - Dehydration [Unknown]
  - Blood pressure increased [Unknown]
  - Blood pressure decreased [Fatal]
  - Pneumonia aspiration [Unknown]
  - Temporomandibular joint syndrome [Unknown]

NARRATIVE: CASE EVENT DATE: 2016
